FAERS Safety Report 15704810 (Version 1)
Quarter: 2018Q4

REPORT INFORMATION
  Report Type: Spontaneous
  Country: JP (occurrence: JP)
  Receive Date: 20181210
  Receipt Date: 20181210
  Transmission Date: 20190205
  Serious: Yes (Other)
  Sender: FDA-Public Use
  Company Number: JP-PFIZER INC-2018416953

PATIENT
  Age: 43 Year
  Sex: Female

DRUGS (8)
  1. VOLTARENE (DICLOFENAC SODIUM) [Suspect]
     Active Substance: DICLOFENAC SODIUM
     Dosage: 25 MG, 3X/DAY AFTER MEALS
     Route: 048
  2. QUETIAPINE. [Suspect]
     Active Substance: QUETIAPINE
     Dosage: 150 MG, 1X/DAY BEFORE BEDTIME
     Route: 048
  3. EFFEXOR [Suspect]
     Active Substance: VENLAFAXINE HYDROCHLORIDE
     Dosage: 37.5 MG, 1X/DAY
     Route: 048
     Dates: start: 20180528, end: 20180803
  4. EFFEXOR [Suspect]
     Active Substance: VENLAFAXINE HYDROCHLORIDE
     Dosage: 75 MG, 1X/DAY
     Route: 048
     Dates: start: 20180804, end: 20180913
  5. METHYCOBAL [Suspect]
     Active Substance: METHYLCOBALAMIN
     Dosage: 500 UG, 3X/DAY AFTER MEALS
     Route: 048
  6. FLUNITRAZEPAM AMEL [Suspect]
     Active Substance: FLUNITRAZEPAM
     Dosage: 4 MG, 1X/DAY BEFORE BEDTIME
     Route: 048
  7. EFFEXOR [Suspect]
     Active Substance: VENLAFAXINE HYDROCHLORIDE
     Dosage: 150 MG, 1X/DAY
     Route: 048
     Dates: start: 20180919
  8. MUCOSTA [Suspect]
     Active Substance: REBAMIPIDE
     Dosage: 100 MG, 3X/DAY AFTER MEALS
     Route: 048

REACTIONS (1)
  - Blepharospasm [Recovered/Resolved]

NARRATIVE: CASE EVENT DATE: 201808
